FAERS Safety Report 12880772 (Version 1)
Quarter: 2016Q4

REPORT INFORMATION
  Report Type: Spontaneous
  Country: US (occurrence: US)
  Receive Date: 20161024
  Receipt Date: 20161024
  Transmission Date: 20170207
  Serious: Yes (Hospitalization, Disabling, Other)
  Sender: FDA-Public Use
  Company Number: None

PATIENT
  Age: 79 Year
  Sex: Male
  Weight: 90 kg

DRUGS (16)
  1. ASA [Concomitant]
     Active Substance: ASPIRIN
  2. LUMIGAN [Concomitant]
     Active Substance: BIMATOPROST
  3. ELIQUIS [Suspect]
     Active Substance: APIXABAN
     Indication: CEREBROVASCULAR ACCIDENT PROPHYLAXIS
     Route: 048
     Dates: start: 20160427, end: 20160524
  4. VANCOMYCIN [Suspect]
     Active Substance: VANCOMYCIN
     Indication: STAPHYLOCOCCAL BACTERAEMIA
     Route: 042
     Dates: start: 20160425, end: 20160510
  5. METOPROLOL. [Concomitant]
     Active Substance: METOPROLOL
  6. PRAVASTATIN. [Concomitant]
     Active Substance: PRAVASTATIN
  7. HYDRALAZINE [Concomitant]
     Active Substance: HYDRALAZINE HYDROCHLORIDE
  8. EDECRIN [Concomitant]
     Active Substance: ETHACRYNIC ACID
  9. AMIODARONE [Concomitant]
     Active Substance: AMIODARONE
  10. DOXAZOSIN [Concomitant]
     Active Substance: DOXAZOSIN\DOXAZOSIN MESYLATE
  11. CARTIA XT [Concomitant]
     Active Substance: DILTIAZEM HYDROCHLORIDE
  12. REPAGLINIDE. [Concomitant]
     Active Substance: REPAGLINIDE
  13. TRADJENTA [Concomitant]
     Active Substance: LINAGLIPTIN
  14. ELIQUIS [Suspect]
     Active Substance: APIXABAN
     Indication: ATRIAL FIBRILLATION
     Route: 048
     Dates: start: 20160427, end: 20160524
  15. BREO ELLIPTA [Concomitant]
     Active Substance: FLUTICASONE FUROATE\VILANTEROL TRIFENATATE
  16. FOLIC ACID. [Concomitant]
     Active Substance: FOLIC ACID

REACTIONS (9)
  - Rectal haemorrhage [None]
  - Haemoglobin decreased [None]
  - Gastrointestinal inflammation [None]
  - Duodenal perforation [None]
  - Epistaxis [None]
  - Lethargy [None]
  - Gastrointestinal haemorrhage [None]
  - Haematoma [None]
  - Asthenia [None]

NARRATIVE: CASE EVENT DATE: 20160525
